FAERS Safety Report 15707509 (Version 1)
Quarter: 2018Q4

REPORT INFORMATION
  Report Type: Spontaneous
  Country: SE (occurrence: SE)
  Receive Date: 20181211
  Receipt Date: 20181211
  Transmission Date: 20190205
  Serious: Yes (Hospitalization)
  Sender: FDA-Public Use
  Company Number: SE-INGENUS PHARMACEUTICALS, LLC-INF201812-001147

PATIENT
  Age: 56 Year
  Sex: Female

DRUGS (5)
  1. CYCLOPHOSPHAMIDE. [Suspect]
     Active Substance: CYCLOPHOSPHAMIDE
     Dosage: THREE COURSES
  2. PACLITAXEL. [Concomitant]
     Active Substance: PACLITAXEL
     Dosage: 6 DOSES
  3. DOCETAXEL. [Suspect]
     Active Substance: DOCETAXEL
     Dosage: IN THREE-WEEK REGIMEN
  4. EPIRUBICIN [Suspect]
     Active Substance: EPIRUBICIN
     Dosage: THREE COURSES
  5. VALACICLOVIR [Concomitant]
     Active Substance: VALACYCLOVIR HYDROCHLORIDE
     Indication: PYREXIA

REACTIONS (3)
  - Photosensitivity reaction [Recovered/Resolved]
  - Neutropenia [Unknown]
  - Rash vesicular [Recovered/Resolved]

NARRATIVE: CASE EVENT DATE: 201805
